FAERS Safety Report 9297576 (Version 1)
Quarter: 2013Q2

REPORT INFORMATION
  Report Type: Spontaneous
  Country: US (occurrence: US)
  Receive Date: 20130520
  Receipt Date: 20130520
  Transmission Date: 20140414
  Serious: No
  Sender: FDA-Public Use
  Company Number: US-MYLANLABS-2013S1006239

PATIENT
  Sex: Female

DRUGS (1)
  1. ESTRADIOL TABLETS, USP [Suspect]
     Dosage: TAKING 1/2 TABLET DAILY.
     Route: 048

REACTIONS (3)
  - Irritability [Recovered/Resolved]
  - Fatigue [Recovered/Resolved]
  - Feeling abnormal [Recovered/Resolved]
